FAERS Safety Report 4897396-3 (Version None)
Quarter: 2006Q1

REPORT INFORMATION
  Report Type: 
  Country: None (occurrence: None)
  Receive Date: 20060201
  Receipt Date: 20060124
  Transmission Date: 20060701
  Serious: Yes (Other)
  Sender: FDA-Public Use
  Company Number: PHEH2006US01290

PATIENT
  Age: 52 Year
  Sex: Female

DRUGS (5)
  1. LAMISIL [Suspect]
     Indication: NAIL TINEA
     Dosage: 250 MG, QD
     Route: 048
     Dates: start: 20051221
  2. RISPERDAL [Concomitant]
  3. LITHIUM CARBONATE [Concomitant]
  4. BUSPIRONE [Concomitant]
  5. TRAZODONE [Concomitant]

REACTIONS (1)
  - PSYCHOTIC DISORDER [None]
